FAERS Safety Report 25635790 (Version 1)
Quarter: 2025Q3

REPORT INFORMATION
  Report Type: Spontaneous
  Country: US (occurrence: US)
  Receive Date: 20250802
  Receipt Date: 20250802
  Transmission Date: 20251020
  Serious: No
  Sender: IPSEN BIOPHARMACEUTICALS, INC.
  Company Number: US-IPSEN Group, Research and Development-2025-18091

PATIENT
  Age: 46 Year
  Sex: Male

DRUGS (4)
  1. DYSPORT [Suspect]
     Active Substance: ABOBOTULINUMTOXINA
     Indication: Skin wrinkling
     Dates: start: 20250201, end: 20250617
  2. DYSPORT [Suspect]
     Active Substance: ABOBOTULINUMTOXINA
     Indication: Skin wrinkling
     Dates: start: 20250302
  3. DYSPORT [Suspect]
     Active Substance: ABOBOTULINUMTOXINA
     Indication: Off label use
     Dates: start: 20250505
  4. DYSPORT [Suspect]
     Active Substance: ABOBOTULINUMTOXINA
     Indication: Skin cosmetic procedure

REACTIONS (6)
  - Injection site mass [Not Recovered/Not Resolved]
  - Injection site swelling [Not Recovered/Not Resolved]
  - Nodule [Recovering/Resolving]
  - Cyst [Not Recovered/Not Resolved]
  - Off label use [Unknown]
  - Inappropriate schedule of product administration [Unknown]

NARRATIVE: CASE EVENT DATE: 20250225
